FAERS Safety Report 11844477 (Version 1)
Quarter: 2015Q4

REPORT INFORMATION
  Report Type: Spontaneous
  Country: US (occurrence: None)
  Receive Date: 20151216
  Receipt Date: 20151216
  Transmission Date: 20160305
  Serious: Yes (Hospitalization)
  Sender: FDA-Public Use
  Company Number: None

PATIENT
  Age: 38 Year
  Sex: Male
  Weight: 79.83 kg

DRUGS (1)
  1. SULFAMETHOXAZOLE 800MG + TRIMETHOPRIM 160MG (DIS) [Suspect]
     Active Substance: SULFAMETHOXAZOLE\TRIMETHOPRIM
     Indication: FURUNCLE
     Dosage: DIS
     Route: 048
     Dates: start: 20150925, end: 20151002

REACTIONS (3)
  - Asthenia [None]
  - Sepsis [None]
  - Liver function test abnormal [None]

NARRATIVE: CASE EVENT DATE: 20151003
